FAERS Safety Report 7308183-0 (Version None)
Quarter: 2011Q1

REPORT INFORMATION
  Report Type: 
  Country: None (occurrence: None)
  Receive Date: 20110223
  Receipt Date: 20110218
  Transmission Date: 20110831
  Serious: Yes (Death)
  Sender: FDA-Public Use
  Company Number: BE-ROCHE-760655

PATIENT
  Sex: Female
  Weight: 65 kg

DRUGS (1)
  1. OSELTAMIVIR [Suspect]
     Indication: PNEUMONIA
     Route: 042

REACTIONS (1)
  - DEATH [None]
